FAERS Safety Report 7609584-3 (Version None)
Quarter: 2011Q3

REPORT INFORMATION
  Report Type: 
  Country: None (occurrence: None)
  Receive Date: 20110714
  Receipt Date: 20110707
  Transmission Date: 20111222
  Serious: Yes (Hospitalization, Other)
  Sender: FDA-Public Use
  Company Number: DE-ABBOTT-09P-062-0575392-00

PATIENT
  Sex: Male
  Weight: 85 kg

DRUGS (17)
  1. AQUAPHOR [Concomitant]
     Indication: HYPERTENSION
     Dosage: 1 TABLET
  2. ASPIRIN [Concomitant]
     Indication: ANGINA PECTORIS
  3. KARVEA [Concomitant]
     Indication: HYPERTENSION
     Dosage: 1 TABLET
     Dates: start: 20040501
  4. FLUVASTATIN SODIUM [Concomitant]
     Indication: HYPERLIPIDAEMIA
     Dosage: 1 TABLET
     Dates: start: 20050601
  5. EZETIMIBE [Concomitant]
     Indication: HYPERLIPIDAEMIA
     Dates: start: 20061201
  6. ACETYLSALICYLIC ACID SRT [Concomitant]
     Indication: PRODUCT USED FOR UNKNOWN INDICATION
     Dates: start: 20090401
  7. RAMIPRIL [Concomitant]
     Indication: HYPERTENSION
     Dosage: 1 TABLET
     Dates: start: 20060301
  8. TORSEMIDE [Concomitant]
     Indication: HYPERTENSION
     Dates: start: 20040801
  9. AMLODIPINE [Concomitant]
     Indication: HYPERTENSION
     Dosage: PAUSED
  10. BICANORM [Concomitant]
     Indication: ACIDOSIS
     Dosage: 7 TABLETS PER DAY
     Dates: start: 20071201
  11. ZEMPLAR [Suspect]
     Dosage: 7.5MCG PER WEEK
     Route: 048
     Dates: start: 20100119
  12. ZEMPLAR [Suspect]
     Indication: HYPERPARATHYROIDISM
     Dosage: 3.5MCG PER WEEK
     Route: 048
     Dates: start: 20090425, end: 20100119
  13. PROSTESS UNO [Concomitant]
     Indication: BENIGN PROSTATIC HYPERPLASIA
     Dates: start: 20040401
  14. RAMIPRIL [Concomitant]
     Indication: RENAL FAILURE
  15. RENAGEL [Concomitant]
     Indication: HYPERPHOSPHATAEMIA
  16. ALLOPURINOL [Concomitant]
     Indication: HYPERURICAEMIA
     Dosage: 1 TABLET
     Dates: start: 20070101
  17. XIPAMID [Concomitant]
     Indication: PRODUCT USED FOR UNKNOWN INDICATION
     Dates: start: 20040601

REACTIONS (2)
  - PROSTATE CANCER [None]
  - ANGINA PECTORIS [None]
